FAERS Safety Report 7169889-X (Version None)
Quarter: 2010Q4

REPORT INFORMATION
  Report Type: 
  Country: None (occurrence: None)
  Receive Date: 20101217
  Receipt Date: 20101214
  Transmission Date: 20110411
  Serious: Yes (Death, Other)
  Sender: FDA-Public Use
  Company Number: PHHY2010BR84961

PATIENT
  Sex: Male

DRUGS (2)
  1. EXELON [Suspect]
     Indication: DEMENTIA ALZHEIMER'S TYPE
     Dosage: 4.6 MG/24 HOURS (1 PATCH DAILY)
     Route: 062
     Dates: start: 20100801
  2. INSULIN [Concomitant]
     Indication: DIABETES MELLITUS
     Dosage: 14 U IN THE MORNING AND 8 OR 9 U IN THE AFTERNOON

REACTIONS (6)
  - ASPIRATION BRONCHIAL [None]
  - BEDRIDDEN [None]
  - CARDIOVASCULAR DISORDER [None]
  - DIABETIC COMPLICATION [None]
  - GAIT DISTURBANCE [None]
  - PNEUMONIA [None]
